FAERS Safety Report 25348484 (Version 1)
Quarter: 2025Q2

REPORT INFORMATION
  Report Type: Spontaneous
  Country: PL (occurrence: PL)
  Receive Date: 20250522
  Receipt Date: 20250522
  Transmission Date: 20250716
  Serious: Yes (Other)
  Sender: AMGEN
  Company Number: PL-AMGEN-POLSP2025095945

PATIENT
  Age: 55 Year
  Sex: Female

DRUGS (5)
  1. VECTIBIX [Suspect]
     Active Substance: PANITUMUMAB
     Indication: Colorectal cancer metastatic
     Dosage: 6 MILLIGRAM/KILOGRAM, Q2WK WEIGHT DAY 1 (14 DAY RHYTHM)
     Route: 065
     Dates: start: 20241108
  2. IRINOTECAN [Suspect]
     Active Substance: IRINOTECAN
     Indication: Colorectal cancer metastatic
     Route: 040
     Dates: start: 20241108
  3. LEVOLEUCOVORIN [Suspect]
     Active Substance: LEVOLEUCOVORIN
     Indication: Colorectal cancer metastatic
     Route: 040
     Dates: start: 20241108
  4. FLUOROURACIL [Suspect]
     Active Substance: FLUOROURACIL
     Indication: Colorectal cancer metastatic
     Route: 040
     Dates: start: 20241108
  5. FLUOROURACIL [Suspect]
     Active Substance: FLUOROURACIL
     Route: 040

REACTIONS (4)
  - Metastases to liver [Unknown]
  - Hypokalaemia [Unknown]
  - Rash maculo-papular [Not Recovered/Not Resolved]
  - Diarrhoea [Unknown]

NARRATIVE: CASE EVENT DATE: 20250101
